FAERS Safety Report 10980139 (Version 3)
Quarter: 2015Q2

REPORT INFORMATION
  Report Type: Spontaneous
  Country: US (occurrence: US)
  Receive Date: 20150402
  Receipt Date: 20150428
  Transmission Date: 20150821
  Serious: No
  Sender: FDA-Public Use
  Company Number: US-GLAXOSMITHKLINE-US2015038643

PATIENT
  Age: 57 Year
  Sex: Female

DRUGS (2)
  1. FLONASE [Suspect]
     Active Substance: FLUTICASONE PROPIONATE
     Indication: HYPERSENSITIVITY
     Dosage: UNK
     Route: 045
     Dates: start: 20150303, end: 20150313
  2. FLONASE [Suspect]
     Active Substance: FLUTICASONE PROPIONATE
     Indication: RHINORRHOEA

REACTIONS (2)
  - Rhinorrhoea [Recovered/Resolved]
  - Nasal discomfort [Recovering/Resolving]
